FAERS Safety Report 9592947 (Version 2)
Quarter: 2014Q1

REPORT INFORMATION
  Report Type: Spontaneous
  Country: FI (occurrence: FI)
  Receive Date: 20131004
  Receipt Date: 20140116
  Transmission Date: 20141002
  Serious: Yes (Hospitalization)
  Sender: FDA-Public Use
  Company Number: PHHY2013FI110021

PATIENT
  Sex: Female

DRUGS (4)
  1. GILENYA [Suspect]
     Indication: MULTIPLE SCLEROSIS
     Dosage: 1 DF, QD
     Route: 048
     Dates: start: 201302, end: 20130902
  2. GILENYA [Suspect]
     Dosage: 1 DF, QD
     Route: 048
     Dates: start: 201309, end: 20130919
  3. GILENYA [Suspect]
     Dosage: 1 DF, QD
     Route: 048
     Dates: start: 20130928
  4. SPASMO-LYT [Concomitant]

REACTIONS (1)
  - Urosepsis [Unknown]
